FAERS Safety Report 10036375 (Version 1)
Quarter: 2014Q1

REPORT INFORMATION
  Report Type: Spontaneous
  Country: US (occurrence: US)
  Receive Date: 20140325
  Receipt Date: 20140325
  Transmission Date: 20141002
  Serious: Yes (Life-Threatening, Other)
  Sender: FDA-Public Use
  Company Number: PHHY2014US032110

PATIENT
  Sex: 0

DRUGS (8)
  1. CARBOPLATIN [Suspect]
     Indication: EXTRAOCULAR RETINOBLASTOMA
  2. VINCRISTINE [Suspect]
     Indication: EXTRAOCULAR RETINOBLASTOMA
  3. ETOPOSIDE [Suspect]
     Indication: EXTRAOCULAR RETINOBLASTOMA
  4. TOPOTECAN [Suspect]
     Indication: EXTRAOCULAR RETINOBLASTOMA
  5. IDARUBICIN [Suspect]
     Indication: EXTRAOCULAR RETINOBLASTOMA
     Dosage: 24 MG/M2, UNK
  6. DOXORUBICIN [Suspect]
     Indication: EXTRAOCULAR RETINOBLASTOMA
     Dosage: 360 MG/M2, UNK
  7. THIOTEPA [Suspect]
     Indication: EXTRAOCULAR RETINOBLASTOMA
  8. CYCLOPHOSPHAMIDE [Suspect]
     Indication: EXTRAOCULAR RETINOBLASTOMA

REACTIONS (3)
  - Osteosarcoma [Unknown]
  - Limb asymmetry [Unknown]
  - Visual impairment [Unknown]
